FAERS Safety Report 5513886-4 (Version None)
Quarter: 2007Q4

REPORT INFORMATION
  Report Type: 
  Country: None (occurrence: None)
  Receive Date: 20071109
  Receipt Date: 20071109
  Transmission Date: 20080405
  Serious: Yes (Hospitalization)
  Sender: FDA-Public Use
  Company Number: None

PATIENT
  Age: 57 Year
  Sex: Male
  Weight: 124.7392 kg

DRUGS (2)
  1. LISINOPRIL [Suspect]
     Indication: HYPERTENSION
     Dates: start: 20070701, end: 20070809
  2. NIFEDIPINE [Suspect]
     Indication: HYPERTENSION
     Dates: start: 20070812, end: 20071102

REACTIONS (3)
  - DRUG HYPERSENSITIVITY [None]
  - JOINT SWELLING [None]
  - LIP SWELLING [None]
